FAERS Safety Report 5592879-5 (Version None)
Quarter: 2008Q1

REPORT INFORMATION
  Report Type: 
  Country: None (occurrence: None)
  Receive Date: 20080115
  Receipt Date: 20080115
  Transmission Date: 20080703
  Serious: Yes (Hospitalization)
  Sender: FDA-Public Use
  Company Number: None

PATIENT
  Sex: Female
  Weight: 79.5 kg

DRUGS (3)
  1. MYCOPHENOLATE MOFETIL [Suspect]
     Indication: PROPHYLAXIS
     Dosage: 750 MG TWICE DAILY PO
     Route: 048
     Dates: start: 20060117
  2. MYCOPHENOLATE MOFETIL [Suspect]
     Indication: TRANSPLANT REJECTION
     Dosage: 750 MG TWICE DAILY PO
     Route: 048
     Dates: start: 20060117
  3. PROGRAF [Suspect]
     Dosage: 5 MG TWICE DAILY PO
     Route: 048
     Dates: start: 20060119

REACTIONS (6)
  - ABDOMINAL PAIN [None]
  - CONSTIPATION [None]
  - HAEMOGLOBIN DECREASED [None]
  - NAUSEA [None]
  - TRANSPLANT REJECTION [None]
  - VOMITING [None]
